FAERS Safety Report 8273417-5 (Version None)
Quarter: 2012Q2

REPORT INFORMATION
  Report Type: 
  Country: None (occurrence: None)
  Receive Date: 20120411
  Receipt Date: 20120404
  Transmission Date: 20120825
  Serious: Yes (Hospitalization)
  Sender: FDA-Public Use
  Company Number: FR-UCBSA-054795

PATIENT
  Age: 56 Year
  Sex: Male

DRUGS (4)
  1. KEPPRA [Suspect]
     Route: 048
     Dates: start: 20110101, end: 20120124
  2. KEPPRA [Suspect]
     Route: 048
     Dates: start: 20120125, end: 20120213
  3. VALIUM [Concomitant]
     Dates: end: 20120123
  4. PROPRANOLOL [Concomitant]

REACTIONS (9)
  - CAPILLARITIS [None]
  - CONFUSIONAL STATE [None]
  - INFECTION [None]
  - CONVULSION [None]
  - UNEVALUABLE EVENT [None]
  - MICTURITION URGENCY [None]
  - PSYCHOMOTOR RETARDATION [None]
  - COORDINATION ABNORMAL [None]
  - RESTLESSNESS [None]
